FAERS Safety Report 8595965-0 (Version None)
Quarter: 2012Q3

REPORT INFORMATION
  Report Type: 
  Country: None (occurrence: None)
  Receive Date: 20120815
  Receipt Date: 20120807
  Transmission Date: 20120928
  Serious: Yes (Other)
  Sender: FDA-Public Use
  Company Number: TR-BAYER-2011-113395

PATIENT
  Age: 34 Year
  Sex: Female
  Weight: 60 kg

DRUGS (3)
  1. YASMIN [Suspect]
     Indication: UTERINE LEIOMYOMA
  2. YASMIN [Suspect]
     Indication: MENSTRUATION IRREGULAR
     Dosage: UNK
     Route: 048
     Dates: start: 20111101
  3. YASMIN [Suspect]
     Indication: POLYCYSTIC OVARIES
     Dosage: UNK
     Route: 048
     Dates: start: 20000101

REACTIONS (6)
  - VERTIGO [None]
  - NAUSEA [None]
  - PRURITUS [None]
  - HEADACHE [None]
  - GENITAL HAEMORRHAGE [None]
  - VOMITING [None]
